FAERS Safety Report 26000821 (Version 1)
Quarter: 2025Q4

REPORT INFORMATION
  Report Type: Spontaneous
  Country: US (occurrence: US)
  Receive Date: 20251105
  Receipt Date: 20251105
  Transmission Date: 20260117
  Serious: No
  Sender: ANI
  Company Number: US-ANIPHARMA-2025-US-043249

PATIENT
  Age: 75 Year
  Sex: Female
  Weight: 53.52 kg

DRUGS (3)
  1. LISINOPRIL [Concomitant]
     Active Substance: LISINOPRIL
  2. ACTEMRA [Suspect]
     Active Substance: TOCILIZUMAB
     Dosage: INCREASED FROM TWICE A MONTH TO ONCE A WEEK
  3. CORTICOTROPIN [Suspect]
     Active Substance: CORTICOTROPIN
     Indication: Rheumatoid arthritis
     Dosage: 1  SYRINGE (40 UNITS) 3 TIMES A WEEK
     Dates: start: 20250717

REACTIONS (2)
  - Muscular weakness [Not Recovered/Not Resolved]
  - Contraindicated product administered [Unknown]

NARRATIVE: CASE EVENT DATE: 20250901
